FAERS Safety Report 26114902 (Version 1)
Quarter: 2025Q4

REPORT INFORMATION
  Report Type: Spontaneous
  Country: EU (occurrence: EU)
  Receive Date: 20251203
  Receipt Date: 20251203
  Transmission Date: 20260117
  Serious: Yes (Hospitalization)
  Sender: ACCORD
  Company Number: None

PATIENT
  Age: 72 Year
  Sex: Female
  Weight: 94 kg

DRUGS (12)
  1. AMLODIPINE [Suspect]
     Active Substance: AMLODIPINE BESYLATE
     Indication: Hypertension
     Dosage: 1X PER DAY 1
     Dates: start: 20250503, end: 20250704
  2. ENALAPRIL [Suspect]
     Active Substance: ENALAPRIL
     Indication: Hypertension
     Dosage: 1X PER DAY 1 PIECE
     Dates: start: 20250503, end: 20250705
  3. SPIRONOLACTONE [Suspect]
     Active Substance: SPIRONOLACTONE
     Indication: Hypertension
     Dosage: 1X PER DAY 1 PIECE
     Dates: start: 20250709, end: 20251021
  4. METOPROLOL [Concomitant]
     Active Substance: METOPROLOL
     Dosage: TABLET, 100 MG (MILLIGRAM)
  5. ATORVASTATIN [Concomitant]
     Active Substance: ATORVASTATIN
     Dosage: TABLET, 40 MG (MILLIGRAM)
  6. ASPIRIN [Concomitant]
     Active Substance: ASPIRIN
     Dosage: TABLET, 80 MG (MILLIGRAM)
  7. TIOTROPIUM [Concomitant]
     Active Substance: TIOTROPIUM
     Dosage: INHALATIEPOEDER, 13 UG (MICROGRAM)
  8. ALBUTEROL\IPRATROPIUM [Concomitant]
     Active Substance: ALBUTEROL\IPRATROPIUM
     Dosage: NEBULIZATION SOLUTION, 1/0.2 MG/ML (MILLIGRAMS PER MILLILITER)
  9. PANTOPRAZOLE [Concomitant]
     Active Substance: PANTOPRAZOLE
     Dosage: GASTRO-RESISTANT TABLET, 40 MG (MILLIGRAM)
  10. PAROXETINE [Concomitant]
     Active Substance: PAROXETINE
     Dosage: TABLET, 20 MG (MILLIGRAM)
  11. FENOTEROL\IPRATROPIUM BROMIDE [Concomitant]
     Active Substance: FENOTEROL\IPRATROPIUM BROMIDE
     Dosage: AEROSOL, 50/20 UG/DOSE (MICROGRAMS PER DOSE)
  12. BECLOMETHASONE\FORMOTEROL [Concomitant]
     Active Substance: BECLOMETHASONE\FORMOTEROL
     Dosage: POWDER FOR INHALATION, 200/6 UG/DOSE (MICROGRAMS PER DOSE)

REACTIONS (2)
  - Cough [Recovering/Resolving]
  - Oedema [Recovering/Resolving]
